FAERS Safety Report 4431061-1 (Version None)
Quarter: 2004Q3

REPORT INFORMATION
  Report Type: 
  Country: None (occurrence: None)
  Receive Date: 20040824
  Receipt Date: 20040819
  Transmission Date: 20050211
  Serious: Yes (Other)
  Sender: FDA-Public Use
  Company Number: PHBS2004BR10914

PATIENT
  Age: 47 Year
  Sex: Female
  Weight: 58 kg

DRUGS (2)
  1. TRILEPTAL [Suspect]
     Indication: EPILEPSY
     Dosage: 300 MG, TID
     Route: 048
     Dates: start: 20020101
  2. PHENOBARBITAL SRT [Concomitant]
     Indication: EPILEPSY
     Dosage: 100 MG, QD
     Route: 048

REACTIONS (2)
  - CHONDROPATHY [None]
  - DEAFNESS [None]
